FAERS Safety Report 8763845 (Version 1)
Quarter: 2012Q4

REPORT INFORMATION
  Report Type: 
  Country: US (occurrence: US)
  Receive Date: 20120831
  Receipt Date: 20120831
  Transmission Date: 20130627
  Serious: No
  Sender: FDA-Public Use
  Company Number: US-PFIZER INC-2012213610

PATIENT
  Age: 56 Year
  Sex: Female
  Weight: 83.9 kg

DRUGS (4)
  1. ARTHROTEC [Suspect]
     Indication: ARTHRITIS
     Dosage: diclofenac 50 mg/misoprostol 200 mcg, once a day
     Route: 048
     Dates: start: 20120816, end: 20120825
  2. PRILOSEC [Concomitant]
     Indication: GASTRIC DISORDER
     Dosage: UNK
  3. METOPROLOL [Concomitant]
     Indication: CARDIAC DISORDER
     Dosage: UNK
  4. LISINOPRIL [Concomitant]
     Indication: CARDIAC DISORDER
     Dosage: UNK

REACTIONS (7)
  - Malaise [Not Recovered/Not Resolved]
  - Bone pain [Not Recovered/Not Resolved]
  - Insomnia [Not Recovered/Not Resolved]
  - Abdominal discomfort [Not Recovered/Not Resolved]
  - Gastrooesophageal reflux disease [Not Recovered/Not Resolved]
  - Oesophageal pain [Not Recovered/Not Resolved]
  - Abdominal pain upper [Not Recovered/Not Resolved]
